FAERS Safety Report 6975259-7 (Version None)
Quarter: 2010Q3

REPORT INFORMATION
  Report Type: 
  Country: None (occurrence: None)
  Receive Date: 20100910
  Receipt Date: 20090225
  Transmission Date: 20110219
  Serious: No
  Sender: FDA-Public Use
  Company Number: US-WYE-H08367009

PATIENT
  Sex: Female
  Weight: 90.8 kg

DRUGS (7)
  1. PRISTIQ [Suspect]
     Indication: DEPRESSION
     Dosage: 350 MG OVER 24 HOURS
     Route: 048
     Dates: start: 20090224, end: 20090224
  2. SYNTHROID [Concomitant]
  3. ZOLOFT [Concomitant]
  4. CONJUGATED ESTROGENS [Concomitant]
  5. ARICEPT [Concomitant]
  6. AVALIDE [Concomitant]
  7. PROPRANOLOL [Concomitant]

REACTIONS (2)
  - INTENTIONAL OVERDOSE [None]
  - POOR QUALITY SLEEP [None]
